FAERS Safety Report 6347367-5 (Version None)
Quarter: 2009Q3

REPORT INFORMATION
  Report Type: 
  Country: None (occurrence: None)
  Receive Date: 20090908
  Receipt Date: 20090908
  Transmission Date: 20100115
  Serious: Yes (Death)
  Sender: FDA-Public Use
  Company Number: None

PATIENT
  Sex: Female

DRUGS (11)
  1. REVLIMID [Suspect]
     Indication: B-CELL LYMPHOMA
     Dosage: REVLIMID 25 MG DAILY X 21DAYS ORAL
     Route: 048
     Dates: start: 20090812, end: 20090824
  2. SIMVASTATIN [Concomitant]
  3. METOPROLOL TARTRATE [Concomitant]
  4. LEVOTHROID [Concomitant]
  5. ASPIRIN [Concomitant]
  6. LOMOTIL [Concomitant]
  7. ONDANSETRON [Concomitant]
  8. KLOR-CON [Concomitant]
  9. DOCUSATE/SENNA [Concomitant]
  10. FENTANYL [Concomitant]
  11. LORAZEPAM [Concomitant]

REACTIONS (1)
  - MALIGNANT NEOPLASM PROGRESSION [None]
